FAERS Safety Report 26079760 (Version 1)
Quarter: 2025Q4

REPORT INFORMATION
  Report Type: Report from Study
  Country: US (occurrence: US)
  Receive Date: 20251123
  Receipt Date: 20251123
  Transmission Date: 20260117
  Serious: Yes (Disabling)
  Sender: ABBVIE
  Company Number: US-ABBVIE-6058315

PATIENT
  Sex: Male

DRUGS (1)
  1. SKYRIZI [Suspect]
     Active Substance: RISANKIZUMAB-RZAA
     Indication: Psoriasis
     Route: 058
     Dates: start: 20191114

REACTIONS (5)
  - Neck injury [Not Recovered/Not Resolved]
  - Accident at work [Unknown]
  - Spinal column injury [Unknown]
  - Pain [Not Recovered/Not Resolved]
  - Fall [Unknown]
